FAERS Safety Report 7618615-6 (Version None)
Quarter: 2011Q3

REPORT INFORMATION
  Report Type: 
  Country: None (occurrence: None)
  Receive Date: 20110718
  Receipt Date: 20110708
  Transmission Date: 20111222
  Serious: Yes (Hospitalization)
  Sender: FDA-Public Use
  Company Number: US-CELGENEUS-163-21660-11070906

PATIENT
  Age: 57 Year
  Sex: Male

DRUGS (2)
  1. CETUXIMAB [Suspect]
     Route: 065
     Dates: start: 20110610, end: 20110630
  2. ABRAXANE [Suspect]
     Route: 048
     Dates: start: 20110610, end: 20110630

REACTIONS (1)
  - DYSPHAGIA [None]
